FAERS Safety Report 17091370 (Version 1)
Quarter: 2019Q4

REPORT INFORMATION
  Report Type: Report from Study
  Country: US (occurrence: US)
  Receive Date: 20191129
  Receipt Date: 20191129
  Transmission Date: 20200122
  Serious: Yes (Death)
  Sender: FDA-Public Use
  Company Number: US-ROCHE-2455110

PATIENT
  Sex: Male

DRUGS (6)
  1. OCREVUS [Suspect]
     Active Substance: OCRELIZUMAB
     Dosage: ON 09/AUG/2018, 30/AUG/2018, 17/SEP/2019?THAN 600 MG EVERY 6 MONTHS
     Route: 042
     Dates: start: 20180418
  2. BACLOFEN. [Concomitant]
     Active Substance: BACLOFEN
  3. ZOCOR [Concomitant]
     Active Substance: SIMVASTATIN
  4. OCREVUS [Suspect]
     Active Substance: OCRELIZUMAB
     Indication: PRIMARY PROGRESSIVE MULTIPLE SCLEROSIS
     Dosage: 20/FEB/2018
     Route: 042
     Dates: start: 20180206
  5. ATENOLOL. [Concomitant]
     Active Substance: ATENOLOL
  6. AMPYRA [Concomitant]
     Active Substance: DALFAMPRIDINE

REACTIONS (1)
  - Death [Fatal]
